FAERS Safety Report 7649452-4 (Version None)
Quarter: 2011Q3

REPORT INFORMATION
  Report Type: 
  Country: None (occurrence: None)
  Receive Date: 20110727
  Receipt Date: 20110718
  Transmission Date: 20111222
  Serious: Yes (Hospitalization, Other)
  Sender: FDA-Public Use
  Company Number: 2010SP057046

PATIENT
  Age: 20 Year
  Sex: Female
  Weight: 95.709 kg

DRUGS (2)
  1. FLUOXETINE [Concomitant]
  2. NUVARING [Suspect]
     Indication: CONTRACEPTION
     Dates: start: 20060209, end: 20061101

REACTIONS (22)
  - PAIN [None]
  - MENTAL DISORDER [None]
  - CEREBRAL VENOUS THROMBOSIS [None]
  - INFLUENZA [None]
  - SUBARACHNOID HAEMORRHAGE [None]
  - EMOTIONAL DISORDER [None]
  - DEEP VEIN THROMBOSIS [None]
  - OVARIAN CYST [None]
  - VISUAL FIELD DEFECT [None]
  - METRORRHAGIA [None]
  - MELANOCYTIC NAEVUS [None]
  - TRANSVERSE SINUS THROMBOSIS [None]
  - NASOPHARYNGITIS [None]
  - CAVERNOUS SINUS THROMBOSIS [None]
  - MULTIPLE INJURIES [None]
  - MIGRAINE [None]
  - INTRACRANIAL PRESSURE INCREASED [None]
  - CEREBROVASCULAR ACCIDENT [None]
  - HYPERCOAGULATION [None]
  - SUPERIOR SAGITTAL SINUS THROMBOSIS [None]
  - VISION BLURRED [None]
  - PAPILLOEDEMA [None]
